FAERS Safety Report 25789897 (Version 2)
Quarter: 2025Q3

REPORT INFORMATION
  Report Type: Report from Study
  Country: EU (occurrence: EU)
  Receive Date: 20250911
  Receipt Date: 20250922
  Transmission Date: 20251020
  Serious: Yes (Other)
  Sender: AUROBINDO
  Company Number: EU-MLMSERVICE-20250821-PI621542-00232-1

PATIENT
  Age: 23 Year
  Sex: Male
  Weight: 85 kg

DRUGS (10)
  1. MYCOPHENOLATE MOFETIL [Suspect]
     Active Substance: MYCOPHENOLATE MOFETIL
     Indication: Nephrotic syndrome
     Dosage: 500 MILLIGRAM, TWO TIMES A DAY (CONTINUED FOR LESS THAN A YEAR)
     Route: 048
  2. MYCOPHENOLATE MOFETIL [Suspect]
     Active Substance: MYCOPHENOLATE MOFETIL
     Indication: Disease recurrence
  3. PREDNISONE [Suspect]
     Active Substance: PREDNISONE
     Indication: Nephrotic syndrome
     Route: 065
  4. PREDNISONE [Suspect]
     Active Substance: PREDNISONE
     Indication: Disease recurrence
  5. CYCLOSPORINE [Suspect]
     Active Substance: CYCLOSPORINE
     Indication: Nephrotic syndrome
     Dosage: 80 MILLIGRAM, TWO TIMES A DAY (160 MG/DAY (80 MGX2), TAPERED AND RAPIDLY STOPPED IN SEVERAL WEEKS.)
     Route: 065
  6. CYCLOSPORINE [Suspect]
     Active Substance: CYCLOSPORINE
     Indication: Disease recurrence
  7. OBINUTUZUMAB [Concomitant]
     Active Substance: OBINUTUZUMAB
     Indication: Nephrotic syndrome
     Dosage: 1000 MILLIGRAM, ONCE A DAY (ON DAYS 1 AND 15)
     Route: 065
  8. OBINUTUZUMAB [Concomitant]
     Active Substance: OBINUTUZUMAB
     Indication: Glomerulonephritis minimal lesion
  9. RITUXIMAB [Concomitant]
     Active Substance: RITUXIMAB
     Indication: Nephrotic syndrome
     Route: 065
  10. RITUXIMAB [Concomitant]
     Active Substance: RITUXIMAB
     Indication: Disease recurrence

REACTIONS (3)
  - Peritonitis [Unknown]
  - COVID-19 [Recovered/Resolved]
  - Diarrhoea [Recovered/Resolved]
